FAERS Safety Report 25393234 (Version 1)
Quarter: 2025Q2

REPORT INFORMATION
  Report Type: Spontaneous
  Country: US (occurrence: US)
  Receive Date: 20250604
  Receipt Date: 20250604
  Transmission Date: 20250717
  Serious: No
  Sender: GLAXOSMITHKLINE
  Company Number: US-GSK-US2025AMR069025

PATIENT
  Sex: Female

DRUGS (2)
  1. NUCALA [Suspect]
     Active Substance: MEPOLIZUMAB
     Indication: Asthma
     Dosage: 100 MG, Q4W
     Dates: start: 202101
  2. BACTRIM [Suspect]
     Active Substance: SULFAMETHOXAZOLE\TRIMETHOPRIM
     Indication: Product used for unknown indication

REACTIONS (1)
  - Drug hypersensitivity [Not Recovered/Not Resolved]
